FAERS Safety Report 19780244 (Version 1)
Quarter: 2021Q3

REPORT INFORMATION
  Report Type: Spontaneous
  Country: US (occurrence: US)
  Receive Date: 20210902
  Receipt Date: 20210902
  Transmission Date: 20211014
  Serious: Yes (Other)
  Sender: FDA-Public Use
  Company Number: US-PFIZER INC-202101098209

PATIENT
  Age: 68 Year
  Sex: Female
  Weight: 69.4 kg

DRUGS (1)
  1. PROCARDIA XL [Suspect]
     Active Substance: NIFEDIPINE
     Indication: HYPERTENSION
     Dosage: 30 MG, 2X/DAY
     Dates: start: 202108, end: 202108

REACTIONS (7)
  - Gait disturbance [Recovering/Resolving]
  - Rash [Recovering/Resolving]
  - Muscle spasms [Recovering/Resolving]
  - Chest discomfort [Recovering/Resolving]
  - Atrial fibrillation [Recovering/Resolving]
  - Off label use [Unknown]
  - Migraine [Recovering/Resolving]

NARRATIVE: CASE EVENT DATE: 202108
